FAERS Safety Report 17553187 (Version 1)
Quarter: 2020Q1

REPORT INFORMATION
  Report Type: Spontaneous
  Country: US (occurrence: US)
  Receive Date: 20200317
  Receipt Date: 20200317
  Transmission Date: 20200409
  Serious: No
  Sender: FDA-Public Use
  Company Number: US-HISAMITSU-2019-US-010744

PATIENT
  Age: 72 Year
  Sex: Female
  Weight: 98.88 kg

DRUGS (1)
  1. SALONPAS PAIN RELIEF [Suspect]
     Active Substance: MENTHOL\METHYL SALICYLATE
     Indication: ANALGESIC THERAPY
     Dosage: APPLIED TO BACK AS DIRECTED FOR 8 HOURS
     Route: 061
     Dates: start: 201906, end: 20190608

REACTIONS (3)
  - Rash [Recovering/Resolving]
  - Application site pain [Recovering/Resolving]
  - Pruritus [Recovering/Resolving]

NARRATIVE: CASE EVENT DATE: 201906
